FAERS Safety Report 6603386-2 (Version None)
Quarter: 2010Q1

REPORT INFORMATION
  Report Type: 
  Country: None (occurrence: None)
  Receive Date: 20100226
  Receipt Date: 20090320
  Transmission Date: 20100710
  Serious: No
  Sender: FDA-Public Use
  Company Number: A0774617A

PATIENT
  Age: 57 Year
  Sex: Female

DRUGS (4)
  1. VALTREX [Suspect]
     Dosage: 1G THREE TIMES PER DAY
     Dates: start: 20090205, end: 20090212
  2. CARTIA XT [Concomitant]
  3. ENALAPRIL MALEATE [Concomitant]
  4. PAIN MEDICATION [Concomitant]

REACTIONS (3)
  - DRUG INEFFECTIVE [None]
  - PAIN [None]
  - SKIN LESION [None]
